FAERS Safety Report 23515612 (Version 1)
Quarter: 2024Q1

REPORT INFORMATION
  Report Type: Report from Study
  Country: US (occurrence: US)
  Receive Date: 20240213
  Receipt Date: 20240213
  Transmission Date: 20240409
  Serious: Yes (Hospitalization, Other)
  Sender: FDA-Public Use
  Company Number: US-ABBVIE-5619755

PATIENT
  Age: 83 Year
  Sex: Female

DRUGS (4)
  1. VENCLEXTA [Suspect]
     Active Substance: VENETOCLAX
     Indication: Chronic myelomonocytic leukaemia
     Dosage: LAST ADMIN DATE: JAN 2024
     Route: 048
     Dates: start: 20240109
  2. VENCLEXTA [Suspect]
     Active Substance: VENETOCLAX
     Indication: Chronic myelomonocytic leukaemia
     Dosage: ONGOING YES
     Route: 048
     Dates: start: 20240126
  3. VENCLEXTA [Suspect]
     Active Substance: VENETOCLAX
     Indication: Chronic myelomonocytic leukaemia
     Dosage: FORM STRENGTH: 100 MILLIGRAM?LAST ADMIN DATE: JAN 2024
     Route: 048
     Dates: start: 20240103
  4. AZACITIDINE [Concomitant]
     Active Substance: AZACITIDINE
     Indication: Product used for unknown indication
     Dosage: FREQUENCY TEXT: 7 DAYS GIVEN WHILE INPTIENT
     Dates: start: 20240108, end: 20240114

REACTIONS (3)
  - Hospitalisation [Unknown]
  - Off label use [Unknown]
  - Biopsy bone marrow [Unknown]

NARRATIVE: CASE EVENT DATE: 20240101
